FAERS Safety Report 4654129-3 (Version None)
Quarter: 2005Q2

REPORT INFORMATION
  Report Type: 
  Country: None (occurrence: None)
  Receive Date: 20050505
  Receipt Date: 20050425
  Transmission Date: 20051028
  Serious: Yes (Life-Threatening, Hospitalization, Disabling)
  Sender: FDA-Public Use
  Company Number: US-MERCK-0504USA04383

PATIENT
  Age: 50 Year
  Sex: Male

DRUGS (4)
  1. VIOXX [Suspect]
     Indication: BACK PAIN
     Route: 048
     Dates: start: 20020101
  2. DIOVAN [Concomitant]
     Route: 065
  3. CARDIZEM [Concomitant]
     Route: 065
  4. CRESTOR [Concomitant]
     Route: 065

REACTIONS (2)
  - ARTERIAL DISORDER [None]
  - CARDIAC DISORDER [None]
